FAERS Safety Report 5242563-2 (Version None)
Quarter: 2007Q1

REPORT INFORMATION
  Report Type: 
  Country: None (occurrence: None)
  Receive Date: 20070214
  Receipt Date: 20070206
  Transmission Date: 20070707
  Serious: Yes (Hospitalization)
  Sender: FDA-Public Use
  Company Number: 163-21880-07010715

PATIENT
  Age: 71 Year
  Sex: Female

DRUGS (1)
  1. REVLIMID [Suspect]
     Indication: MULTIPLE MYELOMA
     Dosage: 25 MG, QD X 21 DAYS, ORAL
     Route: 048
     Dates: start: 20061206

REACTIONS (4)
  - CHEST PAIN [None]
  - GASTROENTERITIS VIRAL [None]
  - INFLUENZA [None]
  - WHITE BLOOD CELL COUNT DECREASED [None]
